FAERS Safety Report 18765219 (Version 5)
Quarter: 2021Q1

REPORT INFORMATION
  Report Type: Spontaneous
  Country: DE (occurrence: DE)
  Receive Date: 20210120
  Receipt Date: 20210316
  Transmission Date: 20210419
  Serious: Yes (Hospitalization, Other)
  Sender: FDA-Public Use
  Company Number: DE-GILEAD-2021-0513278

PATIENT
  Age: 71 Year
  Sex: Male
  Weight: 100 kg

DRUGS (32)
  1. HEPARIN [Suspect]
     Active Substance: HEPARIN SODIUM
     Indication: PULMONARY EMBOLISM
     Dosage: 1200 IU/H
     Route: 042
  2. SMOFLIPID [Concomitant]
     Active Substance: FISH OIL\MEDIUM-CHAIN TRIGLYCERIDES\OLIVE OIL\SOYBEAN OIL
     Dosage: 20 %; 250 ML
     Route: 042
  3. LACTULOSE. [Concomitant]
     Active Substance: LACTULOSE
     Dosage: 10 G
     Route: 048
  4. MEROPENEM. [Concomitant]
     Active Substance: MEROPENEM
     Dosage: 1000 MG
     Route: 042
  5. INSULIN [Concomitant]
     Active Substance: INSULIN NOS
  6. URAPIDIL [Concomitant]
     Active Substance: URAPIDIL
  7. KEPPRA [Concomitant]
     Active Substance: LEVETIRACETAM
  8. AMINOMIX [AMINO ACIDS NOS;ELECTROLYTES NOS;GLUCOSE] [Concomitant]
     Active Substance: AMINO ACIDS\DEXTROSE\ELECTROLYTES NOS
     Dosage: 80 ML, Q1HR
     Route: 042
  9. FLUDARABINE [Concomitant]
     Active Substance: FLUDARABINE PHOSPHATE
     Indication: BONE MARROW CONDITIONING REGIMEN
     Dosage: 200 MG, QD
     Route: 048
     Dates: start: 202011
  10. FUROSEMIDE. [Concomitant]
     Active Substance: FUROSEMIDE
     Dosage: 40 MG
     Route: 042
  11. HEPARIN [Suspect]
     Active Substance: HEPARIN SODIUM
     Dosage: 1200 IU/H
     Route: 042
  12. HEPARIN [Suspect]
     Active Substance: HEPARIN SODIUM
     Dosage: 200 IU/ML, 300 IU/H ? 1.5 ML/H
     Route: 042
  13. JONOSTERIL [Concomitant]
     Dosage: 5 ML, Q1HR
     Route: 042
  14. POTASSIUM [Concomitant]
     Active Substance: POTASSIUM
  15. QUETIAPINE. [Concomitant]
     Active Substance: QUETIAPINE
     Dosage: 25 MG
     Route: 048
  16. PIPERACILLIN AND TAZOBACTAM [Concomitant]
     Active Substance: PIPERACILLIN SODIUM\TAZOBACTAM SODIUM
     Dosage: UNK
     Dates: start: 20201127, end: 20201201
  17. CLARITHROMYCIN. [Concomitant]
     Active Substance: CLARITHROMYCIN
     Dosage: UNK
     Dates: start: 20201130
  18. YESCARTA [Suspect]
     Active Substance: AXICABTAGENE CILOLEUCEL
     Indication: DIFFUSE LARGE B-CELL LYMPHOMA
     Dosage: UNK
     Route: 042
     Dates: start: 20201130, end: 20201130
  19. CYCLOPHOSPHAMIDE. [Concomitant]
     Active Substance: CYCLOPHOSPHAMIDE
     Indication: BONE MARROW CONDITIONING REGIMEN
     Dosage: UNK
     Dates: start: 202011
  20. VANCOMYCIN [Concomitant]
     Active Substance: VANCOMYCIN
  21. METHYLPREDNISOLONE. [Concomitant]
     Active Substance: METHYLPREDNISOLONE
     Dosage: 10 MG
     Route: 042
  22. PANTOZOL [Concomitant]
     Active Substance: PANTOPRAZOLE SODIUM
  23. COLECALCIFEROL [Concomitant]
     Active Substance: CHOLECALCIFEROL
     Dosage: 1000 IU
     Route: 048
  24. CIRCADIN [Concomitant]
     Active Substance: MELATONIN
     Dosage: 2 MG
     Route: 048
  25. ACICLOVIR [Concomitant]
     Active Substance: ACYCLOVIR
     Dosage: 400 MG
     Route: 048
  26. LEVETIRACETAM. [Concomitant]
     Active Substance: LEVETIRACETAM
     Dosage: 500 MG
     Route: 042
  27. L?THYROXINE [LEVOTHYROXINE] [Concomitant]
     Active Substance: LEVOTHYROXINE
     Indication: HYPOTHYROIDISM
     Dosage: 150 UG
     Route: 048
  28. BISOPROLOL [Concomitant]
     Active Substance: BISOPROLOL
     Dosage: 1.25 MG
     Route: 048
  29. CALCIUM [Concomitant]
     Active Substance: CALCIUM
  30. COTRIMOXAZOLE [Concomitant]
     Active Substance: SULFAMETHOXAZOLE\TRIMETHOPRIM
     Dosage: 960 MG
     Route: 048
  31. PANTOPRAZOLE [Concomitant]
     Active Substance: PANTOPRAZOLE
     Dosage: 40 MG
     Route: 042
  32. CASPOFUNGIN [Concomitant]
     Active Substance: CASPOFUNGIN
     Dosage: UNK
     Dates: start: 20201201, end: 20210112

REACTIONS (17)
  - Acute respiratory failure [Unknown]
  - Immune effector cell-associated neurotoxicity syndrome [Unknown]
  - Encephalopathy [Unknown]
  - Urinary tract infection enterococcal [Unknown]
  - Sepsis [Unknown]
  - Cytomegalovirus infection reactivation [Unknown]
  - Retroperitoneal haematoma [Not Recovered/Not Resolved]
  - Pulmonary embolism [Unknown]
  - Shock haemorrhagic [Unknown]
  - Large intestinal ulcer haemorrhage [Unknown]
  - Retroperitoneal haemorrhage [Recovered/Resolved]
  - Pneumonia klebsiella [Unknown]
  - Thrombocytopenia [Unknown]
  - Retroperitoneal haemorrhage [Unknown]
  - Cytokine release syndrome [Unknown]
  - Acute kidney injury [Unknown]
  - Pneumonia aspiration [Unknown]

NARRATIVE: CASE EVENT DATE: 202012
